FAERS Safety Report 11123156 (Version 2)
Quarter: 2015Q2

REPORT INFORMATION
  Report Type: Spontaneous
  Country: FR (occurrence: DE)
  Receive Date: 20150519
  Receipt Date: 20150526
  Transmission Date: 20150821
  Serious: Yes (Life-Threatening, Hospitalization)
  Sender: FDA-Public Use
  Company Number: FR-MYLANLABS-2015M1015469

PATIENT

DRUGS (8)
  1. SODIUM BICARBONATE. [Concomitant]
     Active Substance: SODIUM BICARBONATE
     Indication: ACIDOSIS
     Dosage: 5 ML, QID
     Dates: start: 20150105, end: 20150407
  2. INDOMETHACIN                       /00003801/ [Concomitant]
     Active Substance: INDOMETHACIN
     Dosage: 1 ML, TID
     Route: 048
     Dates: start: 20130902, end: 20150410
  3. INDOMETHACIN                       /00003801/ [Concomitant]
     Active Substance: INDOMETHACIN
     Dosage: 20 MG, QD
     Route: 042
     Dates: start: 20150410
  4. CYSTAGON [Suspect]
     Active Substance: CYSTEAMINE BITARTRATE
     Indication: CYSTINOSIS
     Dosage: 150 MG, QID
     Route: 048
     Dates: start: 201303, end: 20150408
  5. VITAMIN D3 [Concomitant]
     Active Substance: CHOLECALCIFEROL
     Dosage: 1500 IU, QD
     Dates: start: 20130902
  6. CYSTEAMINE                         /00492501/ [Concomitant]
     Active Substance: CYSTEAMINE
     Dosage: UNK, TID
     Dates: start: 201203
  7. POTASSIUM [Concomitant]
     Active Substance: POTASSIUM
     Dosage: 20 MG, TID
     Dates: start: 20150105, end: 20150407
  8. SODIUM PHOSPHATE [Concomitant]
     Active Substance: SODIUM PHOSPHATE
     Dosage: 10 ML, QID
     Dates: start: 20150105

REACTIONS (4)
  - Vomiting [Recovering/Resolving]
  - Refusal of treatment by patient [Recovering/Resolving]
  - Treatment noncompliance [Recovering/Resolving]
  - Diarrhoea [Recovering/Resolving]

NARRATIVE: CASE EVENT DATE: 20150407
